FAERS Safety Report 8624092-9 (Version None)
Quarter: 2012Q3

REPORT INFORMATION
  Report Type: 
  Country: None (occurrence: None)
  Receive Date: 20120827
  Receipt Date: 20120817
  Transmission Date: 20120928
  Serious: Yes (Other)
  Sender: FDA-Public Use
  Company Number: US-ASTRAZENECA-2012SE59891

PATIENT
  Sex: Female

DRUGS (2)
  1. ZOLADEX [Suspect]
     Route: 058
  2. ARIMIDEX [Suspect]
     Route: 048

REACTIONS (2)
  - DISEASE PROGRESSION [None]
  - OFF LABEL USE [None]
